FAERS Safety Report 20009201 (Version 1)
Quarter: 2021Q4

REPORT INFORMATION
  Report Type: Report from Study
  Country: CN (occurrence: CN)
  Receive Date: 20211028
  Receipt Date: 20211028
  Transmission Date: 20220303
  Serious: Yes (Other)
  Sender: FDA-Public Use
  Company Number: CN-BRISTOL-MYERS SQUIBB COMPANY-BMS-2021-042866

PATIENT
  Age: 34 Year
  Sex: Female

DRUGS (1)
  1. NIVOLUMAB [Suspect]
     Active Substance: NIVOLUMAB
     Indication: Gastric cancer
     Dosage: 180 MILLIGRAM, Q3WK
     Route: 041
     Dates: start: 20210205

REACTIONS (5)
  - Ascites [Unknown]
  - Liver injury [Unknown]
  - Liver function test abnormal [Unknown]
  - Obstruction [Unknown]
  - Off label use [Unknown]

NARRATIVE: CASE EVENT DATE: 20210201
